FAERS Safety Report 20693374 (Version 1)
Quarter: 2022Q2

REPORT INFORMATION
  Report Type: Spontaneous
  Country: JP (occurrence: JP)
  Receive Date: 20220410
  Receipt Date: 20220410
  Transmission Date: 20220721
  Serious: Yes (Other)
  Sender: FDA-Public Use
  Company Number: JP-TAKEDA-2021TJP129727

PATIENT
  Age: 60 Year
  Sex: Male
  Weight: 76 kg

DRUGS (14)
  1. VECTIBIX [Suspect]
     Active Substance: PANITUMUMAB
     Indication: Colon cancer
     Dosage: 450 MILLIGRAM, Q2WEEKS
     Route: 041
     Dates: start: 20210916, end: 20211028
  2. LEVOLEUCOVORIN CALCIUM [Suspect]
     Active Substance: LEVOLEUCOVORIN CALCIUM
     Indication: Product used for unknown indication
     Dosage: UNK
     Route: 041
     Dates: start: 20210701, end: 20210701
  3. LEVOLEUCOVORIN CALCIUM [Suspect]
     Active Substance: LEVOLEUCOVORIN CALCIUM
     Dosage: UNK
     Route: 041
     Dates: start: 20210715, end: 20210819
  4. LEVOLEUCOVORIN CALCIUM [Suspect]
     Active Substance: LEVOLEUCOVORIN CALCIUM
     Dosage: 304 MILLIGRAM, Q2WEEKS
     Route: 041
     Dates: start: 20210916, end: 20211028
  5. IRINOTECAN HYDROCHLORIDE [Suspect]
     Active Substance: IRINOTECAN HYDROCHLORIDE
     Indication: Product used for unknown indication
     Dosage: UNK
     Route: 041
     Dates: start: 20210701, end: 20210701
  6. IRINOTECAN HYDROCHLORIDE [Suspect]
     Active Substance: IRINOTECAN HYDROCHLORIDE
     Dosage: UNK
     Route: 041
     Dates: start: 20210715, end: 20210819
  7. IRINOTECAN HYDROCHLORIDE [Suspect]
     Active Substance: IRINOTECAN HYDROCHLORIDE
     Dosage: 228 MILLIGRAM, Q2WEEKS
     Route: 041
     Dates: start: 20210916, end: 20211028
  8. FLUOROURACIL [Suspect]
     Active Substance: FLUOROURACIL
     Indication: Product used for unknown indication
     Dosage: UNK
     Route: 041
     Dates: start: 20210701, end: 20210701
  9. FLUOROURACIL [Suspect]
     Active Substance: FLUOROURACIL
     Dosage: UNK
     Route: 041
     Dates: start: 20210715, end: 20210819
  10. FLUOROURACIL [Suspect]
     Active Substance: FLUOROURACIL
     Dosage: 608 MILLIGRAM, Q2WEEKS
     Route: 040
     Dates: start: 20210916, end: 20211028
  11. FLUOROURACIL [Suspect]
     Active Substance: FLUOROURACIL
     Dosage: 3651 MILLIGRAM, Q2WEEKS
     Route: 041
     Dates: start: 20210916, end: 20211028
  12. FOSAPREPITANT [Concomitant]
     Active Substance: FOSAPREPITANT
     Dosage: 150 MILLIGRAM, Q2WEEKS
     Route: 041
     Dates: start: 20210916, end: 20211028
  13. ALOXI [Concomitant]
     Active Substance: PALONOSETRON HYDROCHLORIDE
     Dosage: 0.75 MILLIGRAM, Q2WEEKS
     Route: 041
     Dates: start: 20210916, end: 20211028
  14. DEXAMETHASONE SODIUM PHOSPHATE [Concomitant]
     Active Substance: DEXAMETHASONE SODIUM PHOSPHATE
     Dosage: 6.6 MILLIGRAM, Q2WEEKS
     Route: 041
     Dates: start: 20210916, end: 20211028

REACTIONS (5)
  - Hepatic neoplasm [Unknown]
  - Paronychia [Recovered/Resolved]
  - Paronychia [Recovered/Resolved]
  - Stomatitis [Unknown]
  - Acne [Unknown]

NARRATIVE: CASE EVENT DATE: 20210916
